FAERS Safety Report 6416372-2 (Version None)
Quarter: 2009Q4

REPORT INFORMATION
  Report Type: 
  Country: None (occurrence: None)
  Receive Date: 20091027
  Receipt Date: 20091015
  Transmission Date: 20100525
  Serious: Yes (Hospitalization, Other)
  Sender: FDA-Public Use
  Company Number: BR-PFIZER INC-2009279060

PATIENT
  Age: 57 Year

DRUGS (8)
  1. LYRICA [Suspect]
     Indication: SPINAL DISORDER
     Dosage: 75 MG, 1X/DAY
     Route: 048
     Dates: start: 20090921, end: 20091001
  2. LYRICA [Suspect]
     Dosage: 75 MG, 2X/DAY
     Route: 048
     Dates: start: 20091001
  3. LOSARTAN POTASSIUM [Concomitant]
     Indication: HYPERTENSION
     Dosage: 100 MG, 1X/DAY
  4. HYDROCHLOROTHIAZIDE [Concomitant]
     Indication: HYPERTENSION
     Dosage: UNK
  5. GLUCOPHAGE XR [Concomitant]
     Indication: DIABETES MELLITUS
     Dosage: 500 MG, 3X/DAY
  6. OMEPRAZOLE [Concomitant]
     Dosage: UNK
  7. DIMETICONE [Concomitant]
     Dosage: UNK
  8. CRESTOR [Concomitant]
     Indication: BLOOD CHOLESTEROL INCREASED
     Dosage: UNK
     Dates: end: 20090801

REACTIONS (5)
  - CONDITION AGGRAVATED [None]
  - CRYING [None]
  - GASTROINTESTINAL DISORDER [None]
  - MUSCLE SPASMS [None]
  - PAIN [None]
